FAERS Safety Report 8443673-9 (Version None)
Quarter: 2012Q2

REPORT INFORMATION
  Report Type: 
  Country: None (occurrence: None)
  Receive Date: 20120606
  Receipt Date: 20120528
  Transmission Date: 20120825
  Serious: Yes (Hospitalization, Other)
  Sender: FDA-Public Use
  Company Number: 2012SP016829

PATIENT
  Age: 63 Year
  Sex: Female
  Weight: 45 kg

DRUGS (11)
  1. PEG-INTRON [Suspect]
     Indication: HEPATITIS C
     Dosage: 1.5 MCG/KG, QW, SC
     Route: 058
     Dates: start: 20120209
  2. CELESTAMINE TAB [Concomitant]
  3. REBETOL [Suspect]
     Indication: HEPATITIS C
     Dosage: 600;200;400 MG, QD, PO
     Route: 048
     Dates: start: 20120421
  4. REBETOL [Suspect]
     Indication: HEPATITIS C
     Dosage: 600;200;400 MG, QD, PO
     Route: 048
     Dates: start: 20120209, end: 20120307
  5. REBETOL [Suspect]
     Indication: HEPATITIS C
     Dosage: 600;200;400 MG, QD, PO
     Route: 048
     Dates: start: 20120308, end: 20120419
  6. TELAVIC (ANTIVIRALS NOS) [Suspect]
     Indication: HEPATITIS C
     Dosage: 1500;1000 MG, QD, PO
     Route: 048
     Dates: start: 20120421
  7. TELAVIC (ANTIVIRALS NOS) [Suspect]
     Indication: HEPATITIS C
     Dosage: 1500;1000 MG, QD, PO
     Route: 048
     Dates: start: 20120308, end: 20120329
  8. TELAVIC (ANTIVIRALS NOS) [Suspect]
     Indication: HEPATITIS C
     Dosage: 1500;1000 MG, QD, PO
     Route: 048
     Dates: start: 20120330, end: 20120419
  9. TELAVIC (ANTIVIRALS NOS) [Suspect]
     Indication: HEPATITIS C
     Dosage: 1500;1000 MG, QD, PO
     Route: 048
     Dates: start: 20120209, end: 20120302
  10. RABEPRAZOLE SODIUM [Concomitant]
  11. ALLOPURINOL [Concomitant]

REACTIONS (8)
  - ANAEMIA [None]
  - PYREXIA [None]
  - RASH [None]
  - HYPERURICAEMIA [None]
  - HEPATIC FUNCTION ABNORMAL [None]
  - VOMITING [None]
  - DECREASED APPETITE [None]
  - NAUSEA [None]
